FAERS Safety Report 6110970-1 (Version None)
Quarter: 2009Q1

REPORT INFORMATION
  Report Type: 
  Country: None (occurrence: None)
  Receive Date: 20090311
  Receipt Date: 20090306
  Transmission Date: 20090719
  Serious: Yes (Hospitalization)
  Sender: FDA-Public Use
  Company Number: AU-ASTRAZENECA-2009AC00759

PATIENT

DRUGS (2)
  1. ATENOLOL [Suspect]
  2. VANCOMYCIN [Suspect]
     Route: 051

REACTIONS (1)
  - STRIDOR [None]
